FAERS Safety Report 22923031 (Version 3)
Quarter: 2024Q1

REPORT INFORMATION
  Report Type: Report from Study
  Country: US (occurrence: US)
  Receive Date: 20230908
  Receipt Date: 20240310
  Transmission Date: 20240410
  Serious: Yes (Hospitalization, Other)
  Sender: FDA-Public Use
  Company Number: US-ABBVIE-5398586

PATIENT
  Sex: Female

DRUGS (2)
  1. RINVOQ [Suspect]
     Active Substance: UPADACITINIB
     Indication: Rheumatoid arthritis
     Route: 048
     Dates: start: 20200127
  2. RINVOQ [Suspect]
     Active Substance: UPADACITINIB
     Indication: Rheumatoid arthritis
     Route: 048
     Dates: start: 20200105

REACTIONS (5)
  - Spinal compression fracture [Recovering/Resolving]
  - Neuralgia [Recovering/Resolving]
  - Fracture pain [Not Recovered/Not Resolved]
  - Pain in extremity [Unknown]
  - Limb discomfort [Unknown]

NARRATIVE: CASE EVENT DATE: 20230101
